FAERS Safety Report 5263458-4 (Version None)
Quarter: 2007Q1

REPORT INFORMATION
  Report Type: 
  Country: None (occurrence: None)
  Receive Date: 20061213
  Receipt Date: 20050309
  Transmission Date: 20070707
  Serious: Yes (Other)
  Sender: FDA-Public Use
  Company Number: 2005UW03768

PATIENT
  Age: 65 Year
  Sex: Female
  Weight: 68.038 kg

DRUGS (6)
  1. IRESSA [Suspect]
     Indication: NON-SMALL CELL LUNG CANCER
     Dosage: 250 MG QD PO
     Route: 048
     Dates: start: 20041201
  2. COUMADIN [Concomitant]
  3. LOVENOX [Concomitant]
  4. RITALIN [Concomitant]
  5. LASIX [Concomitant]
  6. POTASSIUM ACETATE [Concomitant]

REACTIONS (1)
  - BLISTER [None]
